FAERS Safety Report 10071970 (Version 2)
Quarter: 2014Q2

REPORT INFORMATION
  Report Type: Spontaneous
  Country: JP (occurrence: JP)
  Receive Date: 20140411
  Receipt Date: 20140523
  Transmission Date: 20141212
  Serious: Yes (Hospitalization, Other)
  Sender: FDA-Public Use
  Company Number: JP-ROCHE-1382517

PATIENT
  Age: 77 Year
  Sex: Male

DRUGS (3)
  1. LUCENTIS [Suspect]
     Indication: AGE-RELATED MACULAR DEGENERATION
     Route: 050
     Dates: start: 20131119
  2. LUCENTIS [Suspect]
     Route: 050
     Dates: start: 20140117
  3. HYALEIN [Concomitant]

REACTIONS (3)
  - Cerebral infarction [Recovered/Resolved]
  - Chest discomfort [Unknown]
  - Blood pressure increased [Unknown]
